FAERS Safety Report 8978204 (Version 2)
Quarter: 2013Q1

REPORT INFORMATION
  Report Type: Spontaneous
  Country: IN (occurrence: IN)
  Receive Date: 20121220
  Receipt Date: 20130226
  Transmission Date: 20140127
  Serious: Yes (Other)
  Sender: FDA-Public Use
  Company Number: PHHY2012IN116457

PATIENT
  Age: 33 Year
  Sex: Female

DRUGS (17)
  1. CICLOSPORIN [Suspect]
     Indication: RENAL TRANSPLANT
  2. AZATHIOPRINE [Suspect]
     Indication: RENAL TRANSPLANT
  3. PREDNISOLONE [Suspect]
     Indication: RENAL TRANSPLANT
  4. FOLINIC ACID [Suspect]
     Route: 042
  5. ACETYLSALICYLIC ACID [Suspect]
  6. METHYLDOPA [Suspect]
     Indication: GESTATIONAL HYPERTENSION
     Dosage: 250 MG, TID
     Route: 048
  7. FOLINIC ACID [Suspect]
     Route: 048
  8. RANITIDINE [Suspect]
     Indication: PROPHYLAXIS
     Dosage: 150 MG, QD
     Route: 048
  9. ONDANSETRON [Suspect]
     Indication: PROPHYLAXIS
     Dosage: 8 MG, UNK
  10. MORPHINE [Suspect]
     Dosage: 0.2 MG, UNK
  11. HYDROCORTISONE [Suspect]
     Indication: PROPHYLAXIS
     Dosage: 100 MG, UNK
     Route: 042
  12. RANITIDINE [Suspect]
     Dosage: 50 MG, UNK
     Route: 042
  13. ONDANSETRON [Suspect]
  14. BUPIVACAINE [Suspect]
  15. FERROUS FUMARATE [Suspect]
  16. ANTIBIOTICS [Suspect]
  17. NORMAL SALINE [Concomitant]

REACTIONS (3)
  - Leukopenia [Unknown]
  - Gestational hypertension [Unknown]
  - Maternal exposure during pregnancy [Unknown]
